FAERS Safety Report 9749314 (Version 3)
Quarter: 2014Q2

REPORT INFORMATION
  Report Type: Spontaneous
  Country: US (occurrence: US)
  Receive Date: 20131212
  Receipt Date: 20140611
  Transmission Date: 20141212
  Serious: No
  Sender: FDA-Public Use
  Company Number: US-INCYTE CORPORATION-2013IN002610

PATIENT
  Age: 61 Year
  Sex: Female

DRUGS (3)
  1. JAKAFI [Suspect]
     Indication: MYELOFIBROSIS
     Dosage: 20 MG, BID
     Route: 048
     Dates: start: 20131031, end: 20140310
  2. ATENOLOL [Concomitant]
  3. INSULIN [Concomitant]

REACTIONS (2)
  - Hot flush [Unknown]
  - Headache [Unknown]
